FAERS Safety Report 5069408-8 (Version None)
Quarter: 2006Q3

REPORT INFORMATION
  Report Type: 
  Country: None (occurrence: None)
  Receive Date: 20060802
  Receipt Date: 20060802
  Transmission Date: 20061208
  Serious: Yes (Hospitalization)
  Sender: FDA-Public Use
  Company Number: None

PATIENT
  Sex: Female
  Weight: 22.7 kg

DRUGS (7)
  1. CYCLOPHOSPHAMIDE [Suspect]
     Dosage: 800 MG
  2. CYTARABINE [Suspect]
     Dosage: 480 MG
  3. DEXAMETHASONE TAB [Concomitant]
     Dosage: 168 MG
  4. METHOTREXATE [Suspect]
     Dosage: 24 MG
  5. PEG-L-ASPARAGINASE (K-H) [Suspect]
     Dosage: 4000 MILLION IU
  6. THIOGUANINE [Suspect]
     Dosage: 700 MG
  7. VINCRISTINE SULFATE [Suspect]
     Dosage: 4.8 MG

REACTIONS (8)
  - CARDIAC ARREST [None]
  - CELLULITIS [None]
  - NEUTROPENIA [None]
  - PSEUDOMONAL BACTERAEMIA [None]
  - RESPIRATORY RATE INCREASED [None]
  - SEPTIC SHOCK [None]
  - SKIN LACERATION [None]
  - TACHYCARDIA [None]
